FAERS Safety Report 5573703-3 (Version None)
Quarter: 2007Q4

REPORT INFORMATION
  Report Type: 
  Country: None (occurrence: None)
  Receive Date: 20071220
  Receipt Date: 20071211
  Transmission Date: 20080405
  Serious: Yes (Hospitalization)
  Sender: FDA-Public Use
  Company Number: 2007-05688

PATIENT
  Age: 92 Year
  Sex: Female

DRUGS (4)
  1. HYDROCODONE BITARTRATE/ACETAMINOPHEN 7.5/750 (WATSON LABORATORIES)(ACE [Suspect]
     Indication: ARTHRITIS
     Dosage: PRN, ORAL
     Route: 048
     Dates: start: 20050101
  2. INVESTIGATIONAL DRUG [Concomitant]
  3. MULTI-MAX VITAMIN SUPPLEMENT [Concomitant]
  4. LOVASTATIN [Concomitant]

REACTIONS (2)
  - ILEUS PARALYTIC [None]
  - INTESTINAL OBSTRUCTION [None]
